FAERS Safety Report 25093770 (Version 1)
Quarter: 2025Q1

REPORT INFORMATION
  Report Type: Report from Study
  Country: CA (occurrence: CA)
  Receive Date: 20250319
  Receipt Date: 20250319
  Transmission Date: 20250409
  Serious: Yes (Other)
  Sender: BIOCON
  Company Number: CA-MYLANLABS-2022M1047392

PATIENT

DRUGS (3)
  1. HULIO [Suspect]
     Active Substance: ADALIMUMAB-FKJP
     Indication: Psoriatic arthropathy
     Route: 058
  2. HULIO [Suspect]
     Active Substance: ADALIMUMAB-FKJP
     Indication: Ankylosing spondylitis
     Route: 058
     Dates: start: 20220617
  3. HULIO [Suspect]
     Active Substance: ADALIMUMAB-FKJP
     Route: 065

REACTIONS (17)
  - Psoriatic arthropathy [Unknown]
  - Brain fog [Unknown]
  - Thirst [Unknown]
  - Hot flush [Not Recovered/Not Resolved]
  - Neck pain [Unknown]
  - Loss of libido [Unknown]
  - Bladder pain [Unknown]
  - Pollakiuria [Unknown]
  - Groin pain [Unknown]
  - Constipation [Unknown]
  - Diarrhoea [Unknown]
  - Dry mouth [Unknown]
  - Insomnia [Unknown]
  - Migraine [Unknown]
  - Fatigue [Recovering/Resolving]
  - Pain [Not Recovered/Not Resolved]
  - Off label use [Unknown]
